FAERS Safety Report 8460202-4 (Version None)
Quarter: 2012Q2

REPORT INFORMATION
  Report Type: 
  Country: None (occurrence: None)
  Receive Date: 20120323
  Receipt Date: 20111014
  Transmission Date: 20120825
  Serious: Yes (Hospitalization)
  Sender: FDA-Public Use
  Company Number: 163-21880-11101756

PATIENT
  Age: 78 Year
  Sex: Male

DRUGS (11)
  1. QVAR (BECLOMETASONE DIPROPIONATE) (UNKNOWN) [Concomitant]
  2. LASIX [Concomitant]
  3. K-TAB (POTASSIUM CHLORIDE) (UNKNOWN) [Concomitant]
  4. DECADRON [Concomitant]
  5. ZYLOPRIM (ALLOPURINOL) (UNKNOWN) [Concomitant]
  6. OMEPRAZOLE [Concomitant]
  7. VERAPAMIL [Concomitant]
  8. PROSCAR (FINASTERIDE) (UNKNOWN) [Concomitant]
  9. PROAIR (FLUTICASONE PROPIONATE) (UNKNOWN) [Concomitant]
  10. REVLIMID [Suspect]
     Indication: MULTIPLE MYELOMA
     Dosage: 10 MG, 1 IN 1 D, PO 5 MG, 1 IN 2 D, PO
     Route: 048
     Dates: start: 20110913
  11. REVLIMID [Suspect]
     Indication: MULTIPLE MYELOMA
     Dosage: 10 MG, 1 IN 1 D, PO 5 MG, 1 IN 2 D, PO
     Route: 048
     Dates: start: 20110201, end: 20110101

REACTIONS (1)
  - FEBRILE NEUTROPENIA [None]
